FAERS Safety Report 8236094-5 (Version None)
Quarter: 2012Q1

REPORT INFORMATION
  Report Type: 
  Country: None (occurrence: None)
  Receive Date: 20120327
  Receipt Date: 20120320
  Transmission Date: 20120608
  Serious: Yes (Hospitalization)
  Sender: FDA-Public Use
  Company Number: US-BIOGENIDEC-2012BI005968

PATIENT
  Age: 45 Year
  Sex: Female

DRUGS (1)
  1. TYSABRI [Suspect]
     Indication: MULTIPLE SCLEROSIS
     Route: 042
     Dates: start: 20110409

REACTIONS (5)
  - INTERVERTEBRAL DISC PROTRUSION [None]
  - SPINAL DECOMPRESSION [None]
  - GENERAL SYMPTOM [None]
  - NASOPHARYNGITIS [None]
  - MULTIPLE SCLEROSIS [None]
